FAERS Safety Report 7636765-5 (Version None)
Quarter: 2011Q3

REPORT INFORMATION
  Report Type: 
  Country: None (occurrence: None)
  Receive Date: 20110722
  Receipt Date: 20110722
  Transmission Date: 20111222
  Serious: No
  Sender: FDA-Public Use
  Company Number: None

PATIENT
  Sex: Female
  Weight: 52.6173 kg

DRUGS (1)
  1. PRADAXA [Suspect]
     Indication: COAGULOPATHY
     Dosage: 2 X A DAY
     Dates: start: 20110628

REACTIONS (3)
  - EPISTAXIS [None]
  - MELAENA [None]
  - HAEMATOCHEZIA [None]
